FAERS Safety Report 4327857-7 (Version None)
Quarter: 2004Q1

REPORT INFORMATION
  Report Type: 
  Country: None (occurrence: None)
  Receive Date: 20040325
  Receipt Date: 20040317
  Transmission Date: 20041129
  Serious: Yes (Hospitalization)
  Sender: FDA-Public Use
  Company Number: ZONI001367

PATIENT
  Age: 14 Year
  Sex: Female

DRUGS (5)
  1. EXCEGRAN (ZONISAMIDE) [Suspect]
     Indication: EPILEPSY
     Dosage: 250 MG DAILY ORAL
     Route: 048
     Dates: start: 20020808, end: 20031227
  2. PREDNISOLONE [Concomitant]
  3. IMURAN [Concomitant]
  4. ALFAROL (ALFACALCIDOL) [Concomitant]
  5. WARFARIN SODIUM [Concomitant]

REACTIONS (1)
  - CALCULUS URETERIC [None]
